FAERS Safety Report 5576191-6 (Version None)
Quarter: 2007Q4

REPORT INFORMATION
  Report Type: 
  Country: None (occurrence: None)
  Receive Date: 20071228
  Receipt Date: 20071220
  Transmission Date: 20080405
  Serious: Yes (Death)
  Sender: FDA-Public Use
  Company Number: US-ROCHE-535002

PATIENT
  Age: 27 Year
  Sex: Male
  Weight: 172.4 kg

DRUGS (6)
  1. KLONOPIN [Suspect]
     Indication: DRUG USE FOR UNKNOWN INDICATION
     Route: 065
  2. MORPHINE SULFATE [Suspect]
     Indication: BACK PAIN
     Dosage: PATIENT WAS TAKING MORHPINE SULFATE ER 30 OR 60 MG.
     Route: 065
  3. NORCO [Suspect]
     Indication: BACK PAIN
     Dosage: DOSING REPORTED AS 10 MG / 325 MG UP TO FOUR TIMES A DAY.
     Route: 048
  4. XANAX [Suspect]
     Indication: DRUG USE FOR UNKNOWN INDICATION
     Route: 065
  5. UNKNOWN HYPERTENSION DRUG [Concomitant]
  6. UNSPECIFIED MEDICATION [Concomitant]

REACTIONS (3)
  - HEADACHE [None]
  - NECK PAIN [None]
  - OVERDOSE [None]
